FAERS Safety Report 14776762 (Version 2)
Quarter: 2018Q2

REPORT INFORMATION
  Report Type: Report from Study
  Country: BR (occurrence: BR)
  Receive Date: 20180419
  Receipt Date: 20180423
  Transmission Date: 20180711
  Serious: Yes (Hospitalization, Other)
  Sender: FDA-Public Use
  Company Number: PHHY2018BR063248

PATIENT
  Age: 70 Year
  Sex: Female
  Weight: 76 kg

DRUGS (4)
  1. FORASEQ [Suspect]
     Active Substance: BUDESONIDE\FORMOTEROL FUMARATE
     Indication: ASTHMA
     Dosage: 1 DF, QD (ONLY AT NIGHT) (FORMOTEROL FUMARATE 12/BUDESONIDE 200 UG)
     Route: 055
  2. AMLODIPINE [Concomitant]
     Active Substance: AMLODIPINE BESYLATE
     Indication: HYPERTENSION
     Dosage: 1 DF, QD (START 1 YEAR AGO)
     Route: 048
  3. LOSARTAN. [Concomitant]
     Active Substance: LOSARTAN
     Indication: HYPERTENSION
     Dosage: 2 DF, QD START 2 YEARS AGO
     Route: 048
  4. BROMAZEPAM [Concomitant]
     Active Substance: BROMAZEPAM
     Indication: INSOMNIA
     Dosage: 1 DF, QD (START 15 YEARS AGO)
     Route: 048

REACTIONS (20)
  - Pulmonary congestion [Recovering/Resolving]
  - Body height decreased [Recovering/Resolving]
  - Hypokinesia [Recovering/Resolving]
  - Osteoarthritis [Recovering/Resolving]
  - Malaise [Recovering/Resolving]
  - Cough [Unknown]
  - Pneumonia [Recovering/Resolving]
  - Cardiac arrest [Recovering/Resolving]
  - Musculoskeletal stiffness [Unknown]
  - Fall [Recovering/Resolving]
  - Feeling of despair [Recovering/Resolving]
  - Cardiac disorder [Recovering/Resolving]
  - Syncope [Recovering/Resolving]
  - Asthma [Recovering/Resolving]
  - Arthralgia [Not Recovered/Not Resolved]
  - Inappropriate schedule of drug administration [Not Recovered/Not Resolved]
  - Balance disorder [Unknown]
  - Spinal fracture [Recovering/Resolving]
  - Dyspnoea [Recovering/Resolving]
  - Wheezing [Recovering/Resolving]

NARRATIVE: CASE EVENT DATE: 201203
